FAERS Safety Report 12238642 (Version 1)
Quarter: 2016Q2

REPORT INFORMATION
  Report Type: Spontaneous
  Country: US (occurrence: US)
  Receive Date: 20160405
  Receipt Date: 20160405
  Transmission Date: 20160815
  Serious: No
  Sender: FDA-Public Use
  Company Number: US-TEVA-609927USA

PATIENT
  Sex: Male

DRUGS (1)
  1. WARFARIN [Suspect]
     Active Substance: WARFARIN
     Route: 065

REACTIONS (5)
  - Product substitution issue [Unknown]
  - Cold sweat [Unknown]
  - Hyperhidrosis [Unknown]
  - Abdominal pain [Unknown]
  - Headache [Unknown]
